FAERS Safety Report 7953896-0 (Version None)
Quarter: 2011Q4

REPORT INFORMATION
  Report Type: 
  Country: None (occurrence: None)
  Receive Date: 20111202
  Receipt Date: 20111125
  Transmission Date: 20120403
  Serious: Yes (Other)
  Sender: FDA-Public Use
  Company Number: CA-JNJFOC-20111105870

PATIENT
  Sex: Female

DRUGS (2)
  1. ARESTIN [Suspect]
     Indication: ANTIBIOTIC THERAPY
     Route: 061
     Dates: start: 20111005, end: 20111005
  2. ARESTIN [Suspect]
     Indication: PERIODONTAL DISEASE
     Route: 061
     Dates: start: 20111005, end: 20111005

REACTIONS (2)
  - INTENTIONAL DRUG MISUSE [None]
  - TOOTH ABSCESS [None]
